FAERS Safety Report 4950667-4 (Version None)
Quarter: 2006Q1

REPORT INFORMATION
  Report Type: 
  Country: None (occurrence: None)
  Receive Date: 20060321
  Receipt Date: 20060321
  Transmission Date: 20060701
  Serious: Yes (Life-Threatening, Other)
  Sender: FDA-Public Use
  Company Number: None

PATIENT
  Sex: Female
  Weight: 61.6892 kg

DRUGS (2)
  1. TALWIN NX [Suspect]
     Indication: PAIN PROPHYLAXIS
     Dosage: 1 PILL 6 TO 8 HOURS PO
     Route: 048
     Dates: start: 20060222, end: 20060223
  2. TALWIN NX [Suspect]
     Indication: TOOTH EXTRACTION
     Dosage: 1 PILL 6 TO 8 HOURS PO
     Route: 048
     Dates: start: 20060222, end: 20060223

REACTIONS (11)
  - ABASIA [None]
  - ABNORMAL BEHAVIOUR [None]
  - ASTHENIA [None]
  - COMMUNICATION DISORDER [None]
  - CONVULSION [None]
  - DYSPNOEA [None]
  - GASTROINTESTINAL DISORDER [None]
  - MOVEMENT DISORDER [None]
  - MUSCLE RIGIDITY [None]
  - RENAL DISORDER [None]
  - SOMNOLENCE [None]
